FAERS Safety Report 8755776 (Version 2)
Quarter: 2012Q4

REPORT INFORMATION
  Report Type: 
  Country: US (occurrence: US)
  Receive Date: 20120827
  Receipt Date: 20120907
  Transmission Date: 20130627
  Serious: Yes (Death, Other)
  Sender: FDA-Public Use
  Company Number: US-ROCHE-1101911

PATIENT
  Age: 59 Year
  Sex: Male

DRUGS (2)
  1. ALTEPLASE [Suspect]
     Indication: THROMBOSIS
     Route: 065
  2. PLASMIN [Suspect]
     Indication: THROMBOSIS
     Dosage: routecatheter-delivered intrathrombus infusion
     Route: 026

REACTIONS (5)
  - Acute myocardial infarction [Fatal]
  - Ventricular fibrillation [Fatal]
  - Post procedural haematoma [Fatal]
  - Retroperitoneal haematoma [Fatal]
  - Haemorrhage [Unknown]
